FAERS Safety Report 23376469 (Version 3)
Quarter: 2024Q2

REPORT INFORMATION
  Report Type: Spontaneous
  Country: PL (occurrence: PL)
  Receive Date: 20240108
  Receipt Date: 20240412
  Transmission Date: 20240716
  Serious: Yes (Life-Threatening, Hospitalization, Other)
  Sender: FDA-Public Use
  Company Number: PL-PFIZER INC-202300453080

PATIENT
  Age: 5 Year
  Sex: Male

DRUGS (35)
  1. CARBOPLATIN [Suspect]
     Active Substance: CARBOPLATIN
     Indication: Ganglioneuroblastoma
     Dosage: UNK
     Route: 065
  2. CARBOPLATIN [Suspect]
     Active Substance: CARBOPLATIN
     Indication: Metastases to bone marrow
  3. CARBOPLATIN [Suspect]
     Active Substance: CARBOPLATIN
     Indication: Neuroblastoma
  4. CARBOPLATIN [Suspect]
     Active Substance: CARBOPLATIN
     Indication: Metastases to bone
  5. CARBOPLATIN [Suspect]
     Active Substance: CARBOPLATIN
     Indication: Metastases to lymph nodes
  6. POLYETHYLENE GLYCOLS [Suspect]
     Active Substance: POLYETHYLENE GLYCOLS
     Indication: Constipation
     Dosage: UNK
     Route: 065
  7. POLYETHYLENE GLYCOLS [Suspect]
     Active Substance: POLYETHYLENE GLYCOLS
     Indication: Abdominal pain
  8. CISPLATIN [Suspect]
     Active Substance: CISPLATIN
     Indication: Metastases to lymph nodes
     Dosage: UNK
     Route: 065
  9. CISPLATIN [Suspect]
     Active Substance: CISPLATIN
     Indication: Metastases to bone marrow
  10. CISPLATIN [Suspect]
     Active Substance: CISPLATIN
     Indication: Ganglioneuroblastoma
  11. CISPLATIN [Suspect]
     Active Substance: CISPLATIN
     Indication: Metastases to bone
  12. CISPLATIN [Suspect]
     Active Substance: CISPLATIN
     Indication: Neuroblastoma
  13. CYCLOPHOSPHAMIDE [Suspect]
     Active Substance: CYCLOPHOSPHAMIDE
     Indication: Metastases to lymph nodes
     Dosage: UNK
     Route: 065
  14. CYCLOPHOSPHAMIDE [Suspect]
     Active Substance: CYCLOPHOSPHAMIDE
     Indication: Metastases to bone marrow
  15. CYCLOPHOSPHAMIDE [Suspect]
     Active Substance: CYCLOPHOSPHAMIDE
     Indication: Ganglioneuroblastoma
  16. CYCLOPHOSPHAMIDE [Suspect]
     Active Substance: CYCLOPHOSPHAMIDE
     Indication: Metastases to bone
  17. CYCLOPHOSPHAMIDE [Suspect]
     Active Substance: CYCLOPHOSPHAMIDE
     Indication: Neuroblastoma
  18. DINUTUXIMAB [Suspect]
     Active Substance: DINUTUXIMAB
     Indication: Ganglioneuroblastoma
     Dosage: UNK
     Route: 065
  19. ETOPOSIDE [Suspect]
     Active Substance: ETOPOSIDE
     Indication: Metastases to lymph nodes
     Dosage: UNK
     Route: 065
  20. ETOPOSIDE [Suspect]
     Active Substance: ETOPOSIDE
     Indication: Metastases to bone marrow
  21. ETOPOSIDE [Suspect]
     Active Substance: ETOPOSIDE
     Indication: Ganglioneuroblastoma
  22. ETOPOSIDE [Suspect]
     Active Substance: ETOPOSIDE
     Indication: Metastases to bone
  23. ETOPOSIDE [Suspect]
     Active Substance: ETOPOSIDE
     Indication: Neuroblastoma
  24. ISOTRETINOIN [Suspect]
     Active Substance: ISOTRETINOIN
     Indication: Immunochemotherapy
     Dosage: UNK
     Route: 065
  25. ISOTRETINOIN [Suspect]
     Active Substance: ISOTRETINOIN
     Indication: Off label use
  26. ISOTRETINOIN [Suspect]
     Active Substance: ISOTRETINOIN
     Indication: Ganglioneuroblastoma
  27. NALBUPHINE [Suspect]
     Active Substance: NALBUPHINE
     Indication: Pain in extremity
     Dosage: UNK
     Route: 065
  28. NALBUPHINE [Suspect]
     Active Substance: NALBUPHINE
     Indication: Abdominal pain
  29. TRIMEBUTINE [Suspect]
     Active Substance: TRIMEBUTINE
     Indication: Constipation
     Dosage: UNK
     Route: 065
  30. TRIMEBUTINE [Suspect]
     Active Substance: TRIMEBUTINE
     Indication: Abdominal pain
  31. VINCRISTINE [Suspect]
     Active Substance: VINCRISTINE
     Indication: Metastases to lymph nodes
     Dosage: UNK
     Route: 065
  32. VINCRISTINE [Suspect]
     Active Substance: VINCRISTINE
     Indication: Metastases to bone marrow
  33. VINCRISTINE [Suspect]
     Active Substance: VINCRISTINE
     Indication: Ganglioneuroblastoma
  34. VINCRISTINE [Suspect]
     Active Substance: VINCRISTINE
     Indication: Metastases to bone
  35. VINCRISTINE [Suspect]
     Active Substance: VINCRISTINE
     Indication: Neuroblastoma

REACTIONS (8)
  - Leukopenia [Unknown]
  - Drug ineffective [Not Recovered/Not Resolved]
  - Liver injury [Unknown]
  - Anaemia [Unknown]
  - Infection [Unknown]
  - Eating disorder [Unknown]
  - Product use in unapproved indication [Unknown]
  - Off label use [Unknown]
